FAERS Safety Report 8342500-8 (Version None)
Quarter: 2012Q2

REPORT INFORMATION
  Report Type: 
  Country: None (occurrence: None)
  Receive Date: 20120508
  Receipt Date: 20120427
  Transmission Date: 20120825
  Serious: No
  Sender: FDA-Public Use
  Company Number: US-BIOGENIDEC-2012BI014965

PATIENT
  Sex: Male

DRUGS (3)
  1. OXYCONTIN [Concomitant]
     Indication: PAIN
  2. OXYCONTIN [Concomitant]
     Indication: BURNING SENSATION
  3. TYSABRI [Suspect]
     Indication: MULTIPLE SCLEROSIS
     Route: 042
     Dates: start: 20060921

REACTIONS (4)
  - MULTIPLE SCLEROSIS RELAPSE [None]
  - LETHARGY [None]
  - INTERVERTEBRAL DISC DEGENERATION [None]
  - DEAFNESS NEUROSENSORY [None]
